FAERS Safety Report 18996525 (Version 1)
Quarter: 2021Q1

REPORT INFORMATION
  Report Type: Spontaneous
  Country: US (occurrence: US)
  Receive Date: 20210310
  Receipt Date: 20210310
  Transmission Date: 20210420
  Serious: No
  Sender: FDA-Public Use
  Company Number: None

PATIENT
  Age: 51 Year
  Sex: Female
  Weight: 149.23 kg

DRUGS (2)
  1. VALSARTAN. [Suspect]
     Active Substance: VALSARTAN
     Indication: CARDIOMYOPATHY
     Route: 048
     Dates: start: 201407
  2. IRBESARTAN. [Suspect]
     Active Substance: IRBESARTAN
     Indication: CARDIOMYOPATHY
     Route: 048
     Dates: start: 20191022, end: 20191027

REACTIONS (7)
  - Headache [None]
  - Palpitations [None]
  - Fatigue [None]
  - Dizziness [None]
  - Hyperhidrosis [None]
  - Hypertension [None]
  - Drug ineffective [None]

NARRATIVE: CASE EVENT DATE: 20191022
